FAERS Safety Report 6936909-4 (Version None)
Quarter: 2010Q3

REPORT INFORMATION
  Report Type: 
  Country: None (occurrence: None)
  Receive Date: 20100823
  Receipt Date: 20100817
  Transmission Date: 20110219
  Serious: Yes (Death, Other)
  Sender: FDA-Public Use
  Company Number: US-ELI_LILLY_AND_COMPANY-US200910002227

PATIENT
  Age: 87 Year
  Sex: Female

DRUGS (4)
  1. ALIMTA [Suspect]
     Indication: NON-SMALL CELL LUNG CANCER
     Dosage: 500 MG/M2, UNK
     Dates: start: 20090916, end: 20090916
  2. VITAMIN B-12 [Concomitant]
  3. FOLIC ACID [Concomitant]
     Dosage: 1 MG, DAILY (1/D)
     Dates: start: 20090909, end: 20091003
  4. DECADRON [Concomitant]
     Dosage: 4 MG, 2/D X 3 DAYS

REACTIONS (2)
  - DEATH [None]
  - MUCOSAL INFLAMMATION [None]
